FAERS Safety Report 9404177 (Version 1)
Quarter: 2013Q3

REPORT INFORMATION
  Report Type: Spontaneous
  Country: JP (occurrence: JP)
  Receive Date: 20130717
  Receipt Date: 20130717
  Transmission Date: 20140515
  Serious: Yes (Hospitalization)
  Sender: FDA-Public Use
  Company Number: JP-ASTRAZENECA-2013SE51677

PATIENT
  Sex: Male

DRUGS (2)
  1. SYMBICORT TURBUHALER [Suspect]
     Dosage: 3 DF TWO TIMEAS A DAY
     Route: 055
  2. BAYASPIRIN [Concomitant]
     Dosage: DOSE UNKNOWN
     Route: 048

REACTIONS (2)
  - Cerebral infarction [Unknown]
  - Movement disorder [Unknown]
